FAERS Safety Report 7583422-X (Version None)
Quarter: 2011Q2

REPORT INFORMATION
  Report Type: 
  Country: None (occurrence: None)
  Receive Date: 20110628
  Receipt Date: 20110628
  Transmission Date: 20111010
  Serious: Yes (Death, Hospitalization)
  Sender: FDA-Public Use
  Company Number: None

PATIENT
  Sex: Male
  Weight: 66.9 kg

DRUGS (9)
  1. EMEND [Concomitant]
  2. CISPLATIN [Suspect]
     Dosage: 140.3 MG
     Dates: end: 20110518
  3. AMIODARONE HCL [Concomitant]
  4. COMPAZINE [Concomitant]
  5. ETOPOSIDE [Suspect]
     Dosage: 564 MG
     Dates: end: 20110520
  6. DILAUDID [Concomitant]
  7. METOPROLOL TARTRATE [Concomitant]
  8. ALBUTEROL SULFATE AUTOHALER [Concomitant]
  9. DEXAMETHASONE [Concomitant]

REACTIONS (3)
  - VOMITING [None]
  - BRONCHITIS [None]
  - NAUSEA [None]
